FAERS Safety Report 5275914-3 (Version None)
Quarter: 2007Q1

REPORT INFORMATION
  Report Type: 
  Country: None (occurrence: None)
  Receive Date: 20070326
  Receipt Date: 20070315
  Transmission Date: 20070707
  Serious: Yes (Death, Hospitalization, Other)
  Sender: FDA-Public Use
  Company Number: US-MERCK-0703USA03011

PATIENT
  Age: 65 Year
  Sex: Female
  Weight: 41 kg

DRUGS (6)
  1. DECADRON [Suspect]
     Indication: MULTIPLE MYELOMA
     Route: 048
     Dates: start: 20050209
  2. DECADRON [Concomitant]
     Route: 048
  3. THALOMID [Suspect]
     Indication: GAMMOPATHY
     Route: 048
     Dates: start: 20050209, end: 20050301
  4. THALOMID [Suspect]
     Route: 048
     Dates: start: 20050401, end: 20060501
  5. VELCADE [Concomitant]
     Route: 065
  6. [THERAPY UNSPECIFIED] [Concomitant]
     Route: 065

REACTIONS (8)
  - ASTHENIA [None]
  - BLOOD CREATININE INCREASED [None]
  - DEATH [None]
  - DISEASE PROGRESSION [None]
  - FULL BLOOD COUNT ABNORMAL [None]
  - HAEMOGLOBIN DECREASED [None]
  - PAIN [None]
  - PLATELET COUNT DECREASED [None]
